FAERS Safety Report 10417644 (Version 2)
Quarter: 2014Q3

REPORT INFORMATION
  Report Type: Spontaneous
  Country: JP (occurrence: JP)
  Receive Date: 20140829
  Receipt Date: 20140829
  Transmission Date: 20150326
  Serious: Yes (Hospitalization)
  Sender: FDA-Public Use
  Company Number: JP-009507513-1407JPN009039

PATIENT
  Age: 61 Year
  Sex: Female

DRUGS (8)
  1. NASONEX NASAL 50MICROG 56SPRAYS [Concomitant]
     Indication: NASAL CONGESTION
     Dosage: 200 MICROGRAM, 1 DAY, 2 SPRAYS/ONE TIME
     Route: 045
     Dates: start: 20140204, end: 20140611
  2. METHYCOOL [Concomitant]
     Active Substance: METHYLCOBALAMIN
     Indication: PAROSMIA
     Dosage: 500 MICROGRAM, TID
     Route: 048
     Dates: start: 20140204, end: 20140611
  3. SINGULAIR [Suspect]
     Active Substance: MONTELUKAST SODIUM
     Indication: RHINITIS ALLERGIC
  4. RINDERON (BETAMETHASONE SODIUM PHOSPHATE) [Concomitant]
     Indication: PAROSMIA
     Dosage: 2-3 DROPS, DAILY DOSE UNKNOWN, BID
     Route: 045
     Dates: start: 20140204, end: 20140611
  5. NASONEX NASAL 50MICROG 56SPRAYS [Concomitant]
     Indication: RHINITIS ALLERGIC
  6. SINGULAIR [Suspect]
     Active Substance: MONTELUKAST SODIUM
     Indication: NASAL CONGESTION
     Dosage: 10 MG, QD
     Route: 048
     Dates: start: 20140204, end: 20140611
  7. METHYCOOL [Concomitant]
     Active Substance: METHYLCOBALAMIN
     Indication: VASOCONSTRICTION
  8. RINDERON (BETAMETHASONE SODIUM PHOSPHATE) [Concomitant]
     Indication: NASAL INFLAMMATION

REACTIONS (4)
  - Weight decreased [Not Recovered/Not Resolved]
  - Drug-induced liver injury [Recovering/Resolving]
  - Decreased appetite [Unknown]
  - Malaise [Unknown]

NARRATIVE: CASE EVENT DATE: 201404
